FAERS Safety Report 20420389 (Version 1)
Quarter: 2022Q1

REPORT INFORMATION
  Report Type: Spontaneous
  Country: NL (occurrence: NL)
  Receive Date: 20220203
  Receipt Date: 20220203
  Transmission Date: 20220423
  Serious: Yes (Hospitalization, Other)
  Sender: FDA-Public Use
  Company Number: NL-MLMSERVICE-20220120-3326704-1

PATIENT
  Age: 64 Year
  Sex: Male

DRUGS (2)
  1. MYCOPHENOLATE MOFETIL [Suspect]
     Active Substance: MYCOPHENOLATE MOFETIL
     Indication: Immunosuppressant drug therapy
  2. TACROLIMUS [Suspect]
     Active Substance: TACROLIMUS
     Indication: Immunosuppressant drug therapy

REACTIONS (4)
  - Sepsis [Recovered/Resolved]
  - Pneumoperitoneum [Recovered/Resolved]
  - Intestinal ischaemia [Recovered/Resolved]
  - Pneumatosis intestinalis [Recovered/Resolved]
